FAERS Safety Report 10672490 (Version 1)
Quarter: 2014Q4

REPORT INFORMATION
  Report Type: Spontaneous
  Country: US (occurrence: None)
  Receive Date: 20141222
  Receipt Date: 20141222
  Transmission Date: 20150529
  Serious: Yes (Disabling)
  Sender: FDA-Public Use
  Company Number: None

PATIENT
  Age: 49 Year
  Sex: Male
  Weight: 95.26 kg

DRUGS (1)
  1. LEVOTHYROXINE [Suspect]
     Active Substance: LEVOTHYROXINE
     Indication: HYPERTHYROIDISM
     Route: 048
     Dates: start: 20140806, end: 20141218

REACTIONS (6)
  - Rash [None]
  - Product substitution issue [None]
  - Drug ineffective [None]
  - Product quality issue [None]
  - Thyroid disorder [None]
  - Pruritus [None]

NARRATIVE: CASE EVENT DATE: 20141218
